FAERS Safety Report 5749071-0 (Version None)
Quarter: 2008Q2

REPORT INFORMATION
  Report Type: 
  Country: None (occurrence: None)
  Receive Date: 20080527
  Receipt Date: 20080522
  Transmission Date: 20081010
  Serious: Yes (Other)
  Sender: FDA-Public Use
  Company Number: US-BRISTOL-MYERS SQUIBB COMPANY-14201628

PATIENT
  Age: 58 Year
  Sex: Female

DRUGS (4)
  1. IXABEPILONE [Suspect]
     Indication: BREAST CANCER METASTATIC
  2. ZOLEDRONIC ACID [Suspect]
     Indication: BREAST CANCER METASTATIC
     Dosage: FREQ-3-4 WEEK
     Route: 042
  3. XELODA [Suspect]
     Indication: BREAST CANCER METASTATIC
  4. PREDNISONE TAB [Concomitant]
     Indication: PROPHYLAXIS

REACTIONS (2)
  - AUTONOMIC NEUROPATHY [None]
  - OSTEONECROSIS [None]
